FAERS Safety Report 4785839-5 (Version None)
Quarter: 2005Q4

REPORT INFORMATION
  Report Type: 
  Country: None (occurrence: None)
  Receive Date: 20051003
  Receipt Date: 20050923
  Transmission Date: 20060501
  Serious: Yes (Hospitalization)
  Sender: FDA-Public Use
  Company Number: US-MERCK-0509USA03963

PATIENT
  Age: 55 Year
  Sex: Male
  Weight: 77 kg

DRUGS (7)
  1. VIOXX [Suspect]
     Indication: ARTHRITIS
     Route: 048
     Dates: start: 19991005, end: 20000101
  2. OXYCONTIN [Concomitant]
     Indication: PAIN
     Route: 048
  3. TENORMIN [Concomitant]
     Route: 048
  4. DESYREL [Concomitant]
     Route: 048
  5. CLONAZEPAM [Concomitant]
     Indication: ANXIETY
     Route: 048
  6. ELDEPRYL [Concomitant]
     Route: 065
  7. WELLBUTRIN [Concomitant]
     Indication: DEPRESSION
     Route: 048

REACTIONS (6)
  - BACK PAIN [None]
  - CLONIC CONVULSION [None]
  - EMBOLIC STROKE [None]
  - HYPERLIPIDAEMIA [None]
  - INSOMNIA [None]
  - NECK PAIN [None]
